FAERS Safety Report 15759540 (Version 4)
Quarter: 2022Q1

REPORT INFORMATION
  Report Type: Spontaneous
  Country: FR (occurrence: FR)
  Receive Date: 20181226
  Receipt Date: 20220311
  Transmission Date: 20220424
  Serious: Yes (Death, Hospitalization)
  Sender: FDA-Public Use
  Company Number: FR-AFSSAPS-RE20181378

PATIENT
  Age: 65 Year
  Sex: Male
  Weight: 55.1 kg

DRUGS (21)
  1. LEVETIRACETAM [Suspect]
     Active Substance: LEVETIRACETAM
     Indication: Epilepsy
     Dosage: 14 MILLILITER, QD
     Route: 048
  2. RISPERDAL [Suspect]
     Active Substance: RISPERIDONE
     Indication: Psychotic disorder
     Dosage: 0.5 MILLIGRAM, QD
     Route: 048
     Dates: start: 20181106
  3. VALPROATE SODIUM [Suspect]
     Active Substance: VALPROATE SODIUM
     Indication: Epilepsy
     Dosage: 2500 MILLIGRAM, QD
     Route: 048
  4. CALCIPARINE [Concomitant]
     Active Substance: HEPARIN CALCIUM
     Indication: Anticoagulant therapy
     Dosage: 0.4 MILLILITER, QD
     Route: 058
     Dates: start: 20181008, end: 20181118
  5. ZIAGEN 300 mg, comprime pellicule [Concomitant]
     Indication: HIV infection
     Dosage: 600 MILLIGRAM, QD
     Route: 048
  6. PREDNISONE [Concomitant]
     Active Substance: PREDNISONE
     Indication: Nephrotic syndrome
     Dosage: 5 MILLIGRAM, QD
     Route: 048
  7. PREDNISONE [Concomitant]
     Active Substance: PREDNISONE
     Route: 048
  8. IMOVANE [Concomitant]
     Active Substance: ZOPICLONE
     Indication: Insomnia
     Dosage: 7.5 MILLIGRAM, QD
     Route: 048
     Dates: start: 20181015
  9. DOLIPRANE [Concomitant]
     Active Substance: ACETAMINOPHEN
     Indication: Analgesic intervention supportive therapy
     Dosage: 3 GRAM, QD
     Route: 048
  10. DOLIPRANE [Concomitant]
     Active Substance: ACETAMINOPHEN
     Route: 048
  11. RITONAVIR MYLAN 100 mg, comprime pellicule [Concomitant]
     Indication: HIV infection
     Dosage: 100 MILLIGRAM, QD
     Route: 048
  12. PREZISTA [Concomitant]
     Active Substance: DARUNAVIR ETHANOLATE
     Indication: HIV infection
     Dosage: 800 MILLIGRAM, QD
     Route: 048
  13. PENTACARINAT [Concomitant]
     Active Substance: PENTAMIDINE ISETHIONATE
     Dosage: (1)
     Route: 055
     Dates: start: 20181001, end: 20181001
  14. PENTACARINAT [Concomitant]
     Active Substance: PENTAMIDINE ISETHIONATE
     Indication: Antifungal prophylaxis
  15. ARANESP [Concomitant]
     Active Substance: DARBEPOETIN ALFA
     Indication: Anaemia
     Dosage: 40 MICROGRAM, 1/WEEK
     Route: 058
  16. ARANESP [Concomitant]
     Active Substance: DARBEPOETIN ALFA
     Dosage: 40 MICROGRAM
     Route: 058
  17. CHLORURE DE SODIUM BAXTER 0,9 POUR CENT, solution pour perfusion [Concomitant]
     Indication: Fluid replacement
     Dosage: 1000 MILLILITER, QD
     Route: 058
     Dates: start: 20181031
  18. RAMIPRIL [Concomitant]
     Active Substance: RAMIPRIL
     Indication: Hypertension
     Dosage: 10 MILLIGRAM, QD
     Route: 048
  19. RAMIPRIL [Concomitant]
     Active Substance: RAMIPRIL
     Indication: Hypertension
     Dosage: 10 MILLIGRAM
     Route: 048
  20. LAMIVUDINE [Concomitant]
     Active Substance: LAMIVUDINE
     Indication: HIV infection
     Dosage: 150 MILLIGRAM, BID
     Route: 048
  21. LAMIVUDINE [Concomitant]
     Active Substance: LAMIVUDINE
     Dosage: 150 MILLIGRAM
     Route: 048

REACTIONS (2)
  - Hypothermia [Not Recovered/Not Resolved]
  - Multiple organ dysfunction syndrome [Fatal]

NARRATIVE: CASE EVENT DATE: 20181107
